FAERS Safety Report 9357576 (Version 1)
Quarter: 2013Q2

REPORT INFORMATION
  Report Type: Spontaneous
  Country: FR (occurrence: FR)
  Receive Date: 20130620
  Receipt Date: 20130620
  Transmission Date: 20140414
  Serious: Yes (Hospitalization)
  Sender: FDA-Public Use
  Company Number: FR-TEVA-413258ISR

PATIENT
  Age: 53 Year
  Sex: Male

DRUGS (10)
  1. FUROSEMIDE TEVA [Suspect]
     Dosage: 40 MILLIGRAM DAILY;
     Route: 048
     Dates: start: 20130305, end: 20130417
  2. COAPROVEL [Suspect]
     Dates: start: 20121002
  3. SUTENT [Suspect]
     Dosage: 50 MILLIGRAM DAILY; FOUR WEEKS IN SIX
     Route: 048
     Dates: start: 20120816, end: 20130417
  4. PANTOPRAZOLE SANDOZ [Suspect]
     Route: 048
     Dates: start: 201211, end: 20130417
  5. JANUMET [Concomitant]
     Dosage: 50MG-SITAGLIPTIN,1000MG-METFORMIN, IN THE MORNING
     Dates: start: 201104
  6. DIAMICRON [Concomitant]
     Dosage: IN THE MORNING
     Dates: start: 201104
  7. LANTUS [Concomitant]
     Dosage: 16 UNITS IN THE EVENING
     Dates: start: 201203
  8. NOVORAPID [Concomitant]
     Dates: start: 201209
  9. AMLOR [Concomitant]
     Dates: start: 201107
  10. LEVOTHYROX [Concomitant]
     Dates: start: 20121215

REACTIONS (2)
  - Hypertriglyceridaemia [Recovering/Resolving]
  - Hypercholesterolaemia [Recovering/Resolving]
